FAERS Safety Report 22048922 (Version 1)
Quarter: 2023Q1

REPORT INFORMATION
  Report Type: Spontaneous
  Country: US (occurrence: None)
  Receive Date: 20230228
  Receipt Date: 20230228
  Transmission Date: 20230418
  Serious: Yes (Disabling)
  Sender: FDA-Public Use
  Company Number: None

PATIENT
  Age: 63 Year
  Sex: Female
  Weight: 83.25 kg

DRUGS (4)
  1. CLONAZEPAM [Suspect]
     Active Substance: CLONAZEPAM
     Indication: Migraine
     Dates: start: 20080101
  2. LORAZEPAM [Suspect]
     Active Substance: LORAZEPAM
  3. PROPRANOLOL [Concomitant]
     Active Substance: PROPRANOLOL HYDROCHLORIDE
  4. Cipap [Concomitant]

REACTIONS (5)
  - Withdrawal syndrome [None]
  - Dizziness [None]
  - Balance disorder [None]
  - Illness [None]
  - Therapy change [None]

NARRATIVE: CASE EVENT DATE: 20230227
